FAERS Safety Report 24110553 (Version 1)
Quarter: 2024Q3

REPORT INFORMATION
  Report Type: Spontaneous
  Country: US (occurrence: None)
  Receive Date: 20240717
  Receipt Date: 20240717
  Transmission Date: 20241017
  Serious: No
  Sender: Public
  Company Number: None

PATIENT
  Age: 59 Year
  Sex: Female

DRUGS (2)
  1. FUROSCIX [Suspect]
     Active Substance: FUROSEMIDE
  2. TORSEMIDE [Concomitant]
     Active Substance: TORSEMIDE

REACTIONS (3)
  - Contusion [None]
  - Skin disorder [None]
  - Erythema [None]

NARRATIVE: CASE EVENT DATE: 20240612
